FAERS Safety Report 26095490 (Version 1)
Quarter: 2025Q4

REPORT INFORMATION
  Report Type: Spontaneous
  Country: US (occurrence: US)
  Receive Date: 20251127
  Receipt Date: 20251127
  Transmission Date: 20260117
  Serious: No
  Sender: SANOFI AVENTIS
  Company Number: US-SA-2025SA355210

PATIENT
  Age: 40 Year
  Sex: Male
  Weight: 114.76 kg

DRUGS (3)
  1. REZUROCK [Suspect]
     Active Substance: BELUMOSUDIL
     Indication: Chronic graft versus host disease
     Dosage: 200 MG, QD
     Route: 048
     Dates: start: 19850312
  2. RITUXIMAB [Concomitant]
     Active Substance: RITUXIMAB
     Indication: Graft versus host disease
     Dosage: UNK
  3. AXATILIMAB [Concomitant]
     Active Substance: AXATILIMAB
     Indication: Graft versus host disease
     Dosage: UNK

REACTIONS (3)
  - Renal disorder [Unknown]
  - Depression [Unknown]
  - Anxiety [Unknown]
